FAERS Safety Report 10168925 (Version 1)
Quarter: 2014Q2

REPORT INFORMATION
  Report Type: Spontaneous
  Country: US (occurrence: US)
  Receive Date: 20140513
  Receipt Date: 20140513
  Transmission Date: 20141212
  Serious: No
  Sender: FDA-Public Use
  Company Number: US-JNJFOC-20140414880

PATIENT
  Age: 21 Year
  Sex: Male

DRUGS (12)
  1. INVEGA SUSTENNA [Suspect]
     Indication: ANXIETY
     Dosage: 117 MG + 78 MG
     Route: 030
  2. INVEGA SUSTENNA [Suspect]
     Indication: ANXIETY
     Route: 030
     Dates: start: 201210, end: 201212
  3. PREDNISONE [Concomitant]
     Indication: PRODUCT USED FOR UNKNOWN INDICATION
     Dosage: TAPER
     Route: 048
     Dates: start: 201305, end: 201305
  4. VYVANSE [Concomitant]
     Indication: PRODUCT USED FOR UNKNOWN INDICATION
     Route: 048
     Dates: start: 201305
  5. DIPHENHYDRAMINE [Concomitant]
     Indication: SWELLING
     Dosage: 1-2 CAPSULES EVERY 6 HOURS AS NEEDED
     Route: 048
     Dates: start: 201305
  6. DIPHENHYDRAMINE [Concomitant]
     Indication: PRURITUS
     Dosage: 1-2 CAPSULES EVERY 6 HOURS AS NEEDED
     Route: 048
     Dates: start: 201305
  7. HYDROXYZINE [Concomitant]
     Indication: NAUSEA
     Dosage: 1 CAPSULE EVERY 6  HOURS AS NEEDED
     Route: 048
     Dates: start: 201304
  8. OLANZAPINE [Concomitant]
     Indication: AGITATION
     Dosage: MAY TAKE ADDITIONAL TABLET AS NEEDED FOR AGITATION AND MAY REPEAT IN 45 MIN/ORAL
     Route: 048
     Dates: start: 201306
  9. OLANZAPINE [Concomitant]
     Indication: PSYCHOTIC DISORDER
     Dosage: MAY TAKE ADDITIONAL TABLET AS NEEDED FOR AGITATION AND MAY REPEAT IN 45 MIN/ORAL
     Route: 048
     Dates: start: 201306
  10. PRAZOSIN [Concomitant]
     Indication: PRODUCT USED FOR UNKNOWN INDICATION
     Dosage: AT BEDTIME
     Route: 048
     Dates: start: 201308
  11. TRAZODONE [Concomitant]
     Indication: INSOMNIA
     Dosage: AT BEDTIME
     Route: 048
     Dates: start: 201308
  12. PENICILLIN [Concomitant]
     Indication: PRODUCT USED FOR UNKNOWN INDICATION
     Dosage: TAPER
     Route: 048
     Dates: start: 201304, end: 201304

REACTIONS (4)
  - Adverse event [Unknown]
  - Injection site reaction [Not Recovered/Not Resolved]
  - Injection site reaction [Recovering/Resolving]
  - Inappropriate schedule of drug administration [Unknown]
